FAERS Safety Report 14166483 (Version 2)
Quarter: 2018Q2

REPORT INFORMATION
  Report Type: Spontaneous
  Country: FR (occurrence: FR)
  Receive Date: 20171107
  Receipt Date: 20180503
  Transmission Date: 20180711
  Serious: Yes (Hospitalization, Other)
  Sender: FDA-Public Use
  Company Number: FR-PFIZER INC-2017468284

PATIENT
  Age: 49 Year
  Sex: Male
  Weight: 47 kg

DRUGS (6)
  1. FLUCONAZOLE KABI [Concomitant]
     Active Substance: FLUCONAZOLE
     Indication: ABDOMINAL ABSCESS
     Dosage: 400 MG, DAILY
     Route: 042
     Dates: start: 20171005, end: 20171019
  2. FLUCONAZOLE ARROW [Suspect]
     Active Substance: FLUCONAZOLE
     Indication: ABDOMINAL ABSCESS
     Dosage: 400 MG, DAILY
     Route: 048
     Dates: start: 20171019, end: 20171126
  3. CEFTRIAXONE MYLAN [Suspect]
     Active Substance: CEFTRIAXONE
     Indication: ABDOMINAL ABSCESS
     Dosage: 4 G, DAILY
     Route: 042
     Dates: start: 20171005, end: 20171019
  4. CEFTRIAXONE MYLAN [Suspect]
     Active Substance: CEFTRIAXONE
     Dosage: 4 G, DAILY
     Route: 042
     Dates: start: 20171005, end: 20171126
  5. DALACINE [Suspect]
     Active Substance: CLINDAMYCIN HYDROCHLORIDE
     Indication: ABDOMINAL ABSCESS
     Dosage: 600 MG, DAILY
     Route: 042
     Dates: start: 20171010, end: 20171019
  6. DALACINE [Suspect]
     Active Substance: CLINDAMYCIN HYDROCHLORIDE
     Indication: ABDOMINAL ABSCESS
     Dosage: 600 MG, DAILY
     Route: 048
     Dates: start: 20171019, end: 20171126

REACTIONS (3)
  - Blood alkaline phosphatase increased [Recovered/Resolved]
  - Gamma-glutamyltransferase increased [Unknown]
  - Alanine aminotransferase increased [Unknown]

NARRATIVE: CASE EVENT DATE: 20171019
